FAERS Safety Report 15583682 (Version 1)
Quarter: 2018Q4

REPORT INFORMATION
  Report Type: Spontaneous
  Country: US (occurrence: US)
  Receive Date: 20181105
  Receipt Date: 20181105
  Transmission Date: 20190205
  Serious: Yes (Hospitalization)
  Sender: FDA-Public Use
  Company Number: US-ROCHE-2208908

PATIENT
  Age: 67 Year
  Sex: Female
  Weight: 90.8 kg

DRUGS (3)
  1. ELIQUIS [Concomitant]
     Active Substance: APIXABAN
     Route: 065
  2. RITUXAN [Suspect]
     Active Substance: RITUXIMAB
     Indication: ALVEOLITIS ALLERGIC
     Route: 042
     Dates: start: 201801, end: 201802
  3. PREDNISONE. [Concomitant]
     Active Substance: PREDNISONE
     Dosage: DECREASE 1/2 MG PER WEEK
     Route: 065

REACTIONS (8)
  - Pneumonia [Recovered/Resolved]
  - Thrombosis [Recovered/Resolved]
  - Limb discomfort [Not Recovered/Not Resolved]
  - Intentional product use issue [Unknown]
  - Thinking abnormal [Not Recovered/Not Resolved]
  - Feeling abnormal [Not Recovered/Not Resolved]
  - Influenza [Recovered/Resolved]
  - Off label use [Unknown]

NARRATIVE: CASE EVENT DATE: 201801
